FAERS Safety Report 10017967 (Version 1)
Quarter: 2014Q1

REPORT INFORMATION
  Report Type: Spontaneous
  Country: US (occurrence: US)
  Receive Date: 20140318
  Receipt Date: 20140318
  Transmission Date: 20141002
  Serious: No
  Sender: FDA-Public Use
  Company Number: US-BRISTOL-MYERS SQUIBB COMPANY-18885863

PATIENT
  Age: 75 Year
  Sex: Male
  Weight: 58.5 kg

DRUGS (5)
  1. ERBITUX [Suspect]
     Indication: THROAT CANCER
  2. DIOVAN [Concomitant]
  3. OMEPRAZOLE [Concomitant]
  4. ALLOPURINOL [Concomitant]
  5. LEVOTHYROXINE [Concomitant]

REACTIONS (3)
  - Rash [Unknown]
  - Skin fissures [Unknown]
  - Weight decreased [Unknown]
